FAERS Safety Report 4896364-5 (Version None)
Quarter: 2006Q1

REPORT INFORMATION
  Report Type: 
  Country: None (occurrence: None)
  Receive Date: 20060126
  Receipt Date: 20060118
  Transmission Date: 20060701
  Serious: Yes (Other)
  Sender: FDA-Public Use
  Company Number: USA-2006-0023381

PATIENT
  Age: 54 Year
  Sex: Male
  Weight: 90 kg

DRUGS (3)
  1. OXYCODONE HCL [Suspect]
     Indication: HEADACHE
     Dosage: SEE IMAGE, ORAL
     Route: 048
  2. TRAMADOL (TRAMADOL) [Concomitant]
  3. CARBAMAZEPINE [Concomitant]

REACTIONS (2)
  - COMA [None]
  - GRAND MAL CONVULSION [None]
